FAERS Safety Report 23434338 (Version 1)
Quarter: 2024Q1

REPORT INFORMATION
  Report Type: Spontaneous
  Country: NP (occurrence: NP)
  Receive Date: 20240123
  Receipt Date: 20240123
  Transmission Date: 20240409
  Serious: Yes (Life-Threatening, Hospitalization)
  Sender: FDA-Public Use
  Company Number: NP-MLMSERVICE-20240111-4768476-1

PATIENT
  Age: 58 Day
  Sex: Female

DRUGS (6)
  1. DEXAMETHASONE [Suspect]
     Active Substance: DEXAMETHASONE
     Indication: Tracheobronchitis
     Route: 065
     Dates: start: 202308
  2. DEXAMETHASONE [Suspect]
     Active Substance: DEXAMETHASONE
     Indication: Croup infectious
  3. SODIUM CHLORIDE [Concomitant]
     Active Substance: SODIUM CHLORIDE
     Indication: Tracheobronchitis
     Dosage: HYPOTONIC
     Dates: start: 202308
  4. SODIUM CHLORIDE [Concomitant]
     Active Substance: SODIUM CHLORIDE
     Indication: Croup infectious
  5. EPINEPHRINE [Concomitant]
     Active Substance: EPINEPHRINE
     Indication: Croup infectious
     Dosage: NEBULIZATION
     Dates: start: 202308
  6. EPINEPHRINE [Concomitant]
     Active Substance: EPINEPHRINE
     Indication: Tracheobronchitis

REACTIONS (2)
  - Gastric perforation [Recovering/Resolving]
  - Pneumoperitoneum [Recovering/Resolving]

NARRATIVE: CASE EVENT DATE: 20230101
